FAERS Safety Report 25658007 (Version 1)
Quarter: 2025Q3

REPORT INFORMATION
  Report Type: Spontaneous
  Country: AU (occurrence: AU)
  Receive Date: 20250808
  Receipt Date: 20250808
  Transmission Date: 20251021
  Serious: Yes (Other)
  Sender: ACCORD
  Company Number: None

PATIENT
  Age: 26 Year
  Sex: Male

DRUGS (1)
  1. FINASTERIDE [Suspect]
     Active Substance: FINASTERIDE
     Indication: Product used for unknown indication

REACTIONS (10)
  - Asthenia [Unknown]
  - Fatigue [Unknown]
  - Suicidal ideation [Unknown]
  - Anger [Unknown]
  - Depressed mood [Unknown]
  - Depression [Unknown]
  - Drug withdrawal syndrome [Unknown]
  - Emotional disorder [Unknown]
  - Insomnia [Unknown]
  - Tinnitus [Unknown]
